FAERS Safety Report 8383451-2 (Version None)
Quarter: 2012Q2

REPORT INFORMATION
  Report Type: 
  Country: None (occurrence: None)
  Receive Date: 20120524
  Receipt Date: 20120521
  Transmission Date: 20120825
  Serious: Yes (Other)
  Sender: FDA-Public Use
  Company Number: PHHY2012DE027514

PATIENT
  Sex: Female
  Weight: 58 kg

DRUGS (14)
  1. TORSEMIDE [Concomitant]
     Dosage: 10 MG, QD
     Route: 048
     Dates: start: 20060101
  2. DIURETICS [Concomitant]
  3. PLATELET AGGREGATION INHIBITORS [Concomitant]
  4. RAMIPRIL [Concomitant]
     Dosage: 10 MG, QD
     Route: 048
     Dates: start: 20040101
  5. MOXONIDINE [Concomitant]
     Dates: start: 20080101
  6. RASILEZ [Suspect]
     Indication: HYPERTENSION
     Dosage: 300 MG, QD
     Route: 048
     Dates: start: 20090311, end: 20120121
  7. ASPIRIN [Concomitant]
     Dosage: 100 MG, QD
     Route: 048
     Dates: start: 20040101
  8. CITALOPRAM HYDROBROMIDE [Concomitant]
     Dosage: 20 MG, QD
     Dates: start: 20080101
  9. ANTIADRENERGIC AGENTS, CENTRALLY ACTING [Concomitant]
  10. EBRANTIL [Concomitant]
     Dosage: 30 MG, QD
     Route: 048
     Dates: start: 20080101
  11. ALPHA-ADRENOCEPTOR BLOCKING AGENTS [Concomitant]
  12. ACE INHIBITOR [Concomitant]
  13. INSULIN [Concomitant]
     Indication: DIABETES MELLITUS
  14. ANTIDEPRESSANTS [Concomitant]

REACTIONS (3)
  - BLOOD POTASSIUM INCREASED [None]
  - HAEMOGLOBIN DECREASED [None]
  - BLOOD PRESSURE DIASTOLIC DECREASED [None]
